FAERS Safety Report 13981471 (Version 1)
Quarter: 2017Q3

REPORT INFORMATION
  Report Type: Spontaneous
  Country: US (occurrence: US)
  Receive Date: 20170918
  Receipt Date: 20170918
  Transmission Date: 20171128
  Serious: No
  Sender: FDA-Public Use
  Company Number: US-PFIZER INC-2017401271

PATIENT
  Age: 73 Year
  Sex: Female
  Weight: 72.57 kg

DRUGS (1)
  1. PREMARIN [Suspect]
     Active Substance: ESTROGENS, CONJUGATED
     Indication: PAIN
     Dosage: .625MG AT LEAST 1 GRAM, COULD BE MORE THAN 1 GRAM, TWICE A WEEK
     Dates: start: 2015, end: 20170908

REACTIONS (2)
  - Visual impairment [Unknown]
  - Intentional product misuse [Unknown]
